FAERS Safety Report 7043361-X (Version None)
Quarter: 2010Q4

REPORT INFORMATION
  Report Type: 
  Country: None (occurrence: None)
  Receive Date: 20101013
  Receipt Date: 20101010
  Transmission Date: 20110411
  Serious: Yes (Hospitalization)
  Sender: FDA-Public Use
  Company Number: US-AMGEN-KDL444699

PATIENT
  Sex: Male

DRUGS (1)
  1. ENBREL [Suspect]
     Indication: ANKYLOSING SPONDYLITIS
     Route: 058
     Dates: start: 20100601

REACTIONS (6)
  - ARTHRALGIA [None]
  - BACK PAIN [None]
  - OSTEOARTHRITIS [None]
  - PRODUCTIVE COUGH [None]
  - RHINORRHOEA [None]
  - SNEEZING [None]
